FAERS Safety Report 7127522-7 (Version None)
Quarter: 2010Q4

REPORT INFORMATION
  Report Type: 
  Country: None (occurrence: None)
  Receive Date: 20101129
  Receipt Date: 20100623
  Transmission Date: 20110411
  Serious: No
  Sender: FDA-Public Use
  Company Number: US-PFIZER INC-2010065739

PATIENT
  Sex: Male
  Weight: 96.1 kg

DRUGS (8)
  1. VIAGRA [Suspect]
     Indication: ERECTILE DYSFUNCTION
     Dosage: 100 MG, AS NEEDED
     Route: 048
     Dates: start: 20080101
  2. METFORMIN [Concomitant]
     Indication: DIABETES MELLITUS
     Dosage: 1000 MG, UNK
  3. LIPITOR [Concomitant]
     Dosage: 40 MG, UNK
  4. LIPITOR [Concomitant]
  5. METFORMIN HCL/PIOGLITAZONE HCL [Concomitant]
     Dosage: 1000 MG, UNK
  6. HYZAAR [Concomitant]
     Dosage: 100 MG, UNK
  7. LEVOXYL [Concomitant]
     Dosage: 0.5 MG, UNK
  8. ACETYLSALICYLIC ACID [Concomitant]
     Dosage: 81 MG, UNK

REACTIONS (1)
  - DRUG INEFFECTIVE [None]
